FAERS Safety Report 13586547 (Version 2)
Quarter: 2017Q2

REPORT INFORMATION
  Report Type: Report from Study
  Country: US (occurrence: US)
  Receive Date: 20170526
  Receipt Date: 20170626
  Transmission Date: 20170830
  Serious: Yes (Death)
  Sender: FDA-Public Use
  Company Number: US-PFIZER INC-2017231663

PATIENT
  Age: 63 Year
  Sex: Male

DRUGS (7)
  1. BUSULFAN. [Suspect]
     Active Substance: BUSULFAN
     Indication: PLASMA CELL MYELOMA
     Dosage: 32 MG/M2 DURING 60 MIN (INTRAVENOUS TEST DOSE)
     Route: 042
  2. GEMCITABINE HYDROCHLORIDE. [Suspect]
     Active Substance: GEMCITABINE HYDROCHLORIDE
     Indication: PLASMA CELL MYELOMA
     Dosage: 75 MG/M2, ON DAYS -8 AND -3
     Route: 040
  3. GEMCITABINE HYDROCHLORIDE. [Suspect]
     Active Substance: GEMCITABINE HYDROCHLORIDE
     Dosage: 1800 MG/M2, OVER 3 H AT 10 MG/M2 PER MIN
     Route: 041
  4. PHENYTOIN. [Concomitant]
     Active Substance: PHENYTOIN
     Dosage: 300-600 MG/DAY FROM DAY -9 TO -4
  5. BUSULFAN. [Suspect]
     Active Substance: BUSULFAN
     Dosage: AUC OF 4000 UMOL/L PER MIN, ONCE PER DAY FROM DAYS -8 TO -5 OVER 3 H
  6. MELPHALAN. [Suspect]
     Active Substance: MELPHALAN
     Indication: PLASMA CELL MYELOMA
     Dosage: 60 MG/M2 PER DAY OVER 30 MIN ON DAYS -3 AND -2
     Route: 042
  7. DEXAMETHASONE. [Concomitant]
     Active Substance: DEXAMETHASONE
     Dosage: 8 MG, CYCLIC, TWICE PER DAY FROM DAY -9 TO -2
     Route: 042

REACTIONS (1)
  - Cardiac death [Fatal]
